FAERS Safety Report 5964305-5 (Version None)
Quarter: 2008Q4

REPORT INFORMATION
  Report Type: 
  Country: None (occurrence: None)
  Receive Date: 20081124
  Receipt Date: 20081112
  Transmission Date: 20090506
  Serious: Yes (Other)
  Sender: FDA-Public Use
  Company Number: US-PFIZER INC-2008095458

PATIENT
  Sex: Male

DRUGS (2)
  1. VIAGRA [Suspect]
  2. CIALIS [Interacting]

REACTIONS (2)
  - DEAFNESS [None]
  - DRUG INTERACTION [None]
